FAERS Safety Report 5358586-9 (Version None)
Quarter: 2007Q2

REPORT INFORMATION
  Report Type: 
  Country: None (occurrence: None)
  Receive Date: 20070601
  Receipt Date: 20070420
  Transmission Date: 20071010
  Serious: No
  Sender: FDA-Public Use
  Company Number: PHEH2007US06439

PATIENT
  Age: 68 Year
  Sex: Female
  Weight: 87.5 kg

DRUGS (1)
  1. ENABLEX [Suspect]

REACTIONS (1)
  - PRURITUS [None]
